FAERS Safety Report 18912290 (Version 1)
Quarter: 2021Q1

REPORT INFORMATION
  Report Type: Spontaneous
  Country: US (occurrence: US)
  Receive Date: 20210218
  Receipt Date: 20210218
  Transmission Date: 20210420
  Serious: No
  Sender: FDA-Public Use
  Company Number: US-TEVA-2021-US-1880232

PATIENT
  Age: 72 Year
  Sex: Male

DRUGS (2)
  1. BUDESONIDE TEVA [Suspect]
     Active Substance: BUDESONIDE
     Indication: NASAL POLYPS
     Route: 065
  2. BUDESONIDE TEVA [Suspect]
     Active Substance: BUDESONIDE
     Indication: SINUSITIS

REACTIONS (8)
  - Product use in unapproved indication [Unknown]
  - Epistaxis [Unknown]
  - Wrong technique in product usage process [Unknown]
  - Nasal discomfort [Unknown]
  - Ageusia [Recovering/Resolving]
  - Nasal discharge discolouration [Unknown]
  - Headache [Unknown]
  - Anosmia [Recovering/Resolving]
